FAERS Safety Report 14719644 (Version 3)
Quarter: 2019Q2

REPORT INFORMATION
  Report Type: Spontaneous
  Country: US (occurrence: US)
  Receive Date: 20180405
  Receipt Date: 20190418
  Transmission Date: 20190711
  Serious: Yes (Other)
  Sender: FDA-Public Use
  Company Number: US-ASTRAZENECA-2018SE41333

PATIENT
  Age: 24861 Day
  Sex: Female
  Weight: 114.3 kg

DRUGS (33)
  1. HYDROCHLOROTHIAZIDE. [Concomitant]
     Active Substance: HYDROCHLOROTHIAZIDE
  2. ROBAXIN [Concomitant]
     Active Substance: METHOCARBAMOL
  3. LISINOPRIL. [Concomitant]
     Active Substance: LISINOPRIL
     Indication: HYPERTENSION
     Dates: start: 20120124, end: 20130903
  4. TRAMADOL. [Concomitant]
     Active Substance: TRAMADOL
     Indication: PAIN
     Dates: start: 20130316, end: 20170811
  5. PRILOSEC [Suspect]
     Active Substance: OMEPRAZOLE MAGNESIUM
     Dosage: GENERIC
     Route: 048
     Dates: start: 20170622
  6. PROTONIX [Suspect]
     Active Substance: PANTOPRAZOLE SODIUM
     Route: 065
     Dates: start: 201007, end: 201212
  7. NORVASC [Concomitant]
     Active Substance: AMLODIPINE BESYLATE
  8. AMOXICILLIN. [Concomitant]
     Active Substance: AMOXICILLIN
     Indication: ANTIBIOTIC LEVEL
  9. MELOXICAM. [Concomitant]
     Active Substance: MELOXICAM
     Dates: start: 20100918, end: 20110502
  10. PRILOSEC OTC [Suspect]
     Active Substance: OMEPRAZOLE MAGNESIUM
     Route: 048
     Dates: start: 201007, end: 201212
  11. LOSARTAN POTASSIUM. [Concomitant]
     Active Substance: LOSARTAN POTASSIUM
  12. MEDROL [Concomitant]
     Active Substance: METHYLPREDNISOLONE
  13. DICLOFENAC [Concomitant]
     Active Substance: DICLOFENAC
     Dates: start: 20140908, end: 20170805
  14. NEXIUM [Suspect]
     Active Substance: ESOMEPRAZOLE MAGNESIUM
     Indication: DYSPEPSIA
     Route: 048
     Dates: start: 200812, end: 201106
  15. PREVACID [Suspect]
     Active Substance: LANSOPRAZOLE
     Route: 065
     Dates: start: 201007, end: 201212
  16. LOSARTAN. [Concomitant]
     Active Substance: LOSARTAN
  17. ULTRAM [Concomitant]
     Active Substance: TRAMADOL HYDROCHLORIDE
  18. NEXIUM [Suspect]
     Active Substance: ESOMEPRAZOLE MAGNESIUM
     Indication: DYSPEPSIA
     Route: 048
     Dates: start: 201007, end: 201212
  19. SIMVASTATIN. [Concomitant]
     Active Substance: SIMVASTATIN
  20. MELATONIN [Concomitant]
     Active Substance: MELATONIN
  21. IBUPROFEN. [Concomitant]
     Active Substance: IBUPROFEN
     Dates: start: 20130316, end: 20170811
  22. NEXIUM 24HR [Suspect]
     Active Substance: ESOMEPRAZOLE MAGNESIUM
     Route: 048
     Dates: start: 201007, end: 201212
  23. DITROPAN [Concomitant]
     Active Substance: OXYBUTYNIN CHLORIDE
  24. DEPO-MEDROL [Concomitant]
     Active Substance: METHYLPREDNISOLONE ACETATE
  25. NEXIUM [Suspect]
     Active Substance: ESOMEPRAZOLE MAGNESIUM
     Indication: DYSPEPSIA
     Route: 048
     Dates: start: 20081229, end: 20110630
  26. DEXILANT [Suspect]
     Active Substance: DEXLANSOPRAZOLE
     Route: 065
     Dates: start: 201007, end: 201212
  27. TRAMADOL. [Concomitant]
     Active Substance: TRAMADOL
  28. PROCARDIA [Concomitant]
     Active Substance: NIFEDIPINE
  29. NIFEDICAL XL [Concomitant]
     Active Substance: NIFEDIPINE
  30. NEURONTIN [Concomitant]
     Active Substance: GABAPENTIN
  31. CIMETIDINE [Concomitant]
     Active Substance: CIMETIDINE
     Dates: start: 20100327
  32. PRILOSEC [Suspect]
     Active Substance: OMEPRAZOLE MAGNESIUM
     Route: 048
     Dates: start: 201007, end: 201212
  33. PREVACID 24 HR [Suspect]
     Active Substance: LANSOPRAZOLE
     Route: 065
     Dates: start: 201007, end: 201212

REACTIONS (2)
  - Renal injury [Unknown]
  - Chronic kidney disease [Not Recovered/Not Resolved]

NARRATIVE: CASE EVENT DATE: 20160415
